FAERS Safety Report 6859921-2 (Version None)
Quarter: 2010Q3

REPORT INFORMATION
  Report Type: 
  Country: None (occurrence: None)
  Receive Date: 20100720
  Receipt Date: 20100708
  Transmission Date: 20110219
  Serious: Yes (Hospitalization)
  Sender: FDA-Public Use
  Company Number: BR-ELI_LILLY_AND_COMPANY-BR201006005539

PATIENT
  Sex: Male
  Weight: 39 kg

DRUGS (4)
  1. FORTEO [Suspect]
     Indication: OSTEOPOROSIS
     Dosage: UNK, DAILY (1/D)
     Route: 058
     Dates: start: 20100101
  2. METICORTEN [Concomitant]
     Dosage: 5 MG, DAILY (1/D)
     Route: 048
  3. FOLIC ACID [Concomitant]
     Dosage: 500 MG, DAILY (1/D)
     Route: 065
     Dates: start: 20050101
  4. METOTREXATO [Concomitant]
     Dosage: 10 MG, WEEKLY (1/W)
     Route: 065
     Dates: start: 20050101

REACTIONS (2)
  - INFECTION [None]
  - PURULENCE [None]
